FAERS Safety Report 13122770 (Version 1)
Quarter: 2017Q1

REPORT INFORMATION
  Report Type: Spontaneous
  Country: IT (occurrence: IT)
  Receive Date: 20170117
  Receipt Date: 20170117
  Transmission Date: 20170428
  Serious: Yes (Other)
  Sender: FDA-Public Use
  Company Number: IT-MYLANLABS-2017M1002537

PATIENT

DRUGS (4)
  1. AZATHIOPRINE. [Suspect]
     Active Substance: AZATHIOPRINE
     Indication: CUSHING^S SYNDROME
     Dosage: 100 MG, QD
  2. AZATHIOPRINE. [Suspect]
     Active Substance: AZATHIOPRINE
     Dosage: 2 MG, QD
  3. HYDROGEL [Concomitant]
     Indication: PRODUCT USED FOR UNKNOWN INDICATION
     Dosage: UNK
  4. BETAMETHASONE. [Suspect]
     Active Substance: BETAMETHASONE
     Indication: PYODERMA GANGRENOSUM
     Dosage: 6 MG, QD

REACTIONS (1)
  - Disease recurrence [Unknown]
